FAERS Safety Report 7270632-4 (Version None)
Quarter: 2011Q1

REPORT INFORMATION
  Report Type: 
  Country: None (occurrence: None)
  Receive Date: 20110202
  Receipt Date: 20110127
  Transmission Date: 20110831
  Serious: Yes (Other)
  Sender: FDA-Public Use
  Company Number: A0901706A

PATIENT
  Age: 50 Year
  Sex: Female
  Weight: 72.7 kg

DRUGS (6)
  1. FLUTICASONE NASAL SPRAY [Concomitant]
  2. LEXAPRO [Concomitant]
     Dates: end: 20100601
  3. VENTOLIN HFA [Suspect]
     Route: 055
  4. BUPROPION SR [Concomitant]
     Dates: end: 20100601
  5. QVAR 40 [Concomitant]
  6. LORATADINE [Concomitant]

REACTIONS (3)
  - SYNCOPE [None]
  - DRUG INEFFECTIVE [None]
  - PRODUCT QUALITY ISSUE [None]
